FAERS Safety Report 17474612 (Version 3)
Quarter: 2020Q3

REPORT INFORMATION
  Report Type: Report from Study
  Country: US (occurrence: US)
  Receive Date: 20200228
  Receipt Date: 20200902
  Transmission Date: 20201102
  Serious: Yes (Hospitalization, Other)
  Sender: FDA-Public Use
  Company Number: US-EMD SERONO-9148276

PATIENT
  Age: 53 Year
  Sex: Female

DRUGS (2)
  1. MAVENCLAD [Suspect]
     Active Substance: CLADRIBINE
     Dosage: YEAR ONE MONTH TWO THERAPY.
     Route: 048
     Dates: start: 20191030, end: 20191103
  2. MAVENCLAD [Suspect]
     Active Substance: CLADRIBINE
     Indication: RELAPSING-REMITTING MULTIPLE SCLEROSIS
     Dosage: YEAR ONE MONTH ONE THERAPY.
     Route: 048
     Dates: start: 20191003, end: 20191007

REACTIONS (11)
  - Ophthalmic herpes zoster [Unknown]
  - Lymphocyte count decreased [Unknown]
  - Cellulitis [Unknown]
  - Upper respiratory tract infection [Unknown]
  - Hypertension [Unknown]
  - Fluid retention [Unknown]
  - Post procedural cellulitis [Unknown]
  - Conjunctivitis [Unknown]
  - Swelling [Unknown]
  - Nasopharyngitis [Unknown]
  - Neutrophil count decreased [Unknown]

NARRATIVE: CASE EVENT DATE: 202002
